FAERS Safety Report 9539331 (Version 4)
Quarter: 2014Q1

REPORT INFORMATION
  Report Type: Spontaneous
  Country: DE (occurrence: None)
  Receive Date: 20130917
  Receipt Date: 20140109
  Transmission Date: 20141002
  Serious: Yes (Hospitalization)
  Sender: FDA-Public Use
  Company Number: 7235529

PATIENT
  Age: 46 Year
  Sex: Female

DRUGS (5)
  1. EUTHYROX [Suspect]
     Indication: FATIGUE
     Dosage: HALF TABLET PER DAY
     Route: 048
     Dates: start: 201302
  2. EUTHYROX [Suspect]
     Indication: ASTHENIA
     Dosage: HALF TABLET PER DAY
     Route: 048
     Dates: start: 201302
  3. EUTHYROX [Suspect]
     Indication: FLUID RETENTION
     Dosage: HALF TABLET PER DAY
     Route: 048
     Dates: start: 201302
  4. EUTHYROX [Suspect]
     Indication: HYPERTHYROIDISM
     Dosage: HALF TABLET PER DAY
     Route: 048
     Dates: start: 201302
  5. CARBIMAZOL (CARBIMAZOLE) (CARBIMAZOLE) [Concomitant]

REACTIONS (26)
  - Muscle spasms [None]
  - Alopecia [None]
  - Restless legs syndrome [None]
  - Musculoskeletal discomfort [None]
  - Anxiety [None]
  - Diarrhoea [None]
  - Restlessness [None]
  - Weight decreased [None]
  - Fear [None]
  - Muscle contractions involuntary [None]
  - Fluid retention [None]
  - Movement disorder [None]
  - Dysphagia [None]
  - Nervousness [None]
  - Oropharyngeal discomfort [None]
  - Crying [None]
  - Tremor [None]
  - Myoclonus [None]
  - Muscle disorder [None]
  - Fatigue [None]
  - Asthenia [None]
  - Hyperparathyroidism [None]
  - Malaise [None]
  - Panic reaction [None]
  - Flushing [None]
  - Depression [None]
